FAERS Safety Report 12648155 (Version 5)
Quarter: 2017Q4

REPORT INFORMATION
  Report Type: Report from Study
  Country: US (occurrence: US)
  Receive Date: 20160812
  Receipt Date: 20171122
  Transmission Date: 20180320
  Serious: Yes (Hospitalization, Other)
  Sender: FDA-Public Use
  Company Number: US-SA-2016SA072055

PATIENT
  Age: 29 Year
  Sex: Female

DRUGS (8)
  1. IMODIUM [Concomitant]
     Active Substance: LOPERAMIDE HYDROCHLORIDE
     Indication: DIARRHOEA
     Route: 048
  2. CAPRELSA [Suspect]
     Active Substance: VANDETANIB
     Indication: THYROID CANCER
     Dosage: DOSE: 100MG AND 200MG ALTERNATING EVERY OTHER DAY
     Route: 048
     Dates: start: 20120701
  3. VITAMIN D [Concomitant]
     Active Substance: CHOLECALCIFEROL
     Dosage: QD
     Route: 048
  4. CAPRELSA [Suspect]
     Active Substance: VANDETANIB
     Indication: THYROID CANCER
     Dosage: DOSE: 100MG AND 200MG ALTERNATING EVERY OTHER DAY
     Route: 048
     Dates: start: 20120701
  5. SYNTHROID [Concomitant]
     Active Substance: LEVOTHYROXINE SODIUM
     Indication: HYPOTHYROIDISM
     Dosage: 100 QD, 125 MCG
     Route: 048
  6. CAPRELSA [Suspect]
     Active Substance: VANDETANIB
     Indication: THYROID CANCER
     Dosage: DOSE: 100MG AND 200MG ALTERNATING EVERY OTHER DAY
     Route: 048
     Dates: start: 20120701
  7. CAPRELSA [Suspect]
     Active Substance: VANDETANIB
     Indication: THYROID CANCER
     Dosage: DOSE: 100MG AND 200MG ALTERNATING EVERY OTHER DAY
     Route: 048
     Dates: start: 20120701
  8. CALCIUM [Concomitant]
     Active Substance: CALCIUM
     Indication: BLOOD CALCIUM DECREASED
     Dosage: 500/200 QD
     Route: 048

REACTIONS (21)
  - Blood electrolytes decreased [Unknown]
  - Capillary disorder [Unknown]
  - Diarrhoea [Not Recovered/Not Resolved]
  - Headache [Not Recovered/Not Resolved]
  - Blood calcium increased [Unknown]
  - Skin discolouration [Unknown]
  - Tumour lysis syndrome [Recovered/Resolved]
  - Blood calcium abnormal [Unknown]
  - Hypocalcaemia [Unknown]
  - Epistaxis [Not Recovered/Not Resolved]
  - Rash [Not Recovered/Not Resolved]
  - Calcium metabolism disorder [Unknown]
  - Hypoglycaemia [Unknown]
  - Dyspnoea [Unknown]
  - Muscle spasms [Unknown]
  - Nausea [Recovered/Resolved]
  - Blood thyroid stimulating hormone increased [Unknown]
  - Joint swelling [Unknown]
  - Vomiting [Recovered/Resolved]
  - Constipation [Recovered/Resolved]
  - Blood pressure increased [Unknown]

NARRATIVE: CASE EVENT DATE: 20120707
